FAERS Safety Report 7760681-1 (Version None)
Quarter: 2011Q3

REPORT INFORMATION
  Report Type: 
  Country: None (occurrence: None)
  Receive Date: 20110919
  Receipt Date: 20110909
  Transmission Date: 20111222
  Serious: Yes (Hospitalization)
  Sender: FDA-Public Use
  Company Number: IT-TEVA-300201ISR

PATIENT
  Sex: Female

DRUGS (2)
  1. CARBOPLATIN [Suspect]
     Indication: OVARIAN CANCER
     Dosage: 600 MILLIGRAM;
     Dates: start: 20090708, end: 20100130
  2. PACLITAXEL [Suspect]
     Indication: OVARIAN CANCER
     Dosage: 350 MILLIGRAM;
     Dates: start: 20090708, end: 20100130

REACTIONS (4)
  - MYALGIA [None]
  - PARAESTHESIA [None]
  - HYPERTRANSAMINASAEMIA [None]
  - NAUSEA [None]
